FAERS Safety Report 6983055-X (Version None)
Quarter: 2010Q3

REPORT INFORMATION
  Report Type: 
  Country: None (occurrence: None)
  Receive Date: 20100914
  Receipt Date: 20100621
  Transmission Date: 20110219
  Serious: No
  Sender: FDA-Public Use
  Company Number: US-PFIZER INC-2010077140

PATIENT

DRUGS (2)
  1. LYRICA [Suspect]
     Dosage: UNK
  2. WELLBUTRIN [Interacting]
     Dosage: UNK

REACTIONS (2)
  - CHEST PAIN [None]
  - DRUG INTERACTION [None]
